FAERS Safety Report 13523144 (Version 1)
Quarter: 2017Q2

REPORT INFORMATION
  Report Type: Spontaneous
  Country: US (occurrence: US)
  Receive Date: 20170508
  Receipt Date: 20170508
  Transmission Date: 20170830
  Serious: Yes (Other)
  Sender: FDA-Public Use
  Company Number: US-PFIZER INC-2017194972

PATIENT
  Age: 16 Year
  Sex: Female

DRUGS (2)
  1. VINCRISTINE SULFATE. [Suspect]
     Active Substance: VINCRISTINE SULFATE
     Indication: MEDULLOBLASTOMA
     Dosage: UNK, WEEKLY
  2. VINCRISTINE SULFATE. [Suspect]
     Active Substance: VINCRISTINE SULFATE
     Dosage: UNK (SECOND DOSE)

REACTIONS (7)
  - Muscular weakness [Unknown]
  - Dysphonia [Recovering/Resolving]
  - Dysphagia [Unknown]
  - Vocal cord paralysis [Recovering/Resolving]
  - Toxic neuropathy [Unknown]
  - Paraparesis [Unknown]
  - Quadriplegia [Unknown]
